FAERS Safety Report 8229013-9 (Version None)
Quarter: 2012Q1

REPORT INFORMATION
  Report Type: 
  Country: None (occurrence: None)
  Receive Date: 20120322
  Receipt Date: 20120308
  Transmission Date: 20120608
  Serious: Yes (Other)
  Sender: FDA-Public Use
  Company Number: US-PFIZER INC-2012071874

PATIENT
  Sex: Female

DRUGS (2)
  1. MS CONTIN [Suspect]
  2. OXYCONTIN [Suspect]
     Dosage: 240 MG (3 TABLETS OF 80MG)  Q12H
     Route: 048

REACTIONS (4)
  - INTENTIONAL DRUG MISUSE [None]
  - TACHYCARDIA [None]
  - DIARRHOEA [None]
  - DRUG ABUSE [None]
